FAERS Safety Report 5234547-5 (Version None)
Quarter: 2007Q1

REPORT INFORMATION
  Report Type: 
  Country: None (occurrence: None)
  Receive Date: 20070209
  Receipt Date: 20070125
  Transmission Date: 20070707
  Serious: Yes (Life-Threatening)
  Sender: FDA-Public Use
  Company Number: FR-BRISTOL-MYERS SQUIBB COMPANY-13663679

PATIENT
  Age: 49 Year
  Sex: Male

DRUGS (4)
  1. VASTEN [Suspect]
     Indication: HYPERCHOLESTEROLAEMIA
     Route: 048
  2. RAPAMUNE [Suspect]
     Indication: PSORIASIS
     Route: 058
     Dates: start: 20051215, end: 20060615
  3. ASPIRIN [Suspect]
     Indication: EMBOLISM
     Route: 048
  4. AMLOR [Suspect]
     Indication: MYOCARDIAL INFARCTION
     Route: 048

REACTIONS (1)
  - PULMONARY EMBOLISM [None]
